FAERS Safety Report 4337402-8 (Version None)
Quarter: 2004Q1

REPORT INFORMATION
  Report Type: 
  Country: None (occurrence: None)
  Receive Date: 20040329
  Receipt Date: 20040120
  Transmission Date: 20041129
  Serious: No
  Sender: FDA-Public Use
  Company Number: USA040157036

PATIENT
  Age: 12 Year
  Sex: Female
  Weight: 69 kg

DRUGS (4)
  1. STRATTERA [Suspect]
     Indication: ATTENTION DEFICIT/HYPERACTIVITY DISORDER
     Dosage: 40 MG/DAY
     Dates: start: 20031101, end: 20040101
  2. DDAVP [Concomitant]
  3. ALBUTEROL [Concomitant]
  4. CLARITIN [Concomitant]

REACTIONS (2)
  - DECREASED APPETITE [None]
  - EXPRESSIVE LANGUAGE DISORDER [None]
